FAERS Safety Report 9062592 (Version 1)
Quarter: 2013Q1

REPORT INFORMATION
  Report Type: Spontaneous
  Country: FR (occurrence: FR)
  Receive Date: 20130213
  Receipt Date: 20130213
  Transmission Date: 20140127
  Serious: Yes (Hospitalization)
  Sender: FDA-Public Use
  Company Number: FR-BRISTOL-MYERS SQUIBB COMPANY-17353889

PATIENT
  Age: 69 Year
  Sex: Male

DRUGS (3)
  1. COUMADINE [Suspect]
     Indication: HEART VALVE REPLACEMENT
     Dosage: 20OCT12:6MG?25OCT12,12NOV12,15NOV12,8NOV12,4DEC12:8MG?14DEC,20DEC:9MG?19NOV,23NOV,7DEC,11DEC:10MG
     Route: 048
     Dates: start: 20121019
  2. RIFADINE [Suspect]
     Indication: WOUND SEPSIS
     Dosage: 1 DF: TWO 300MG RIFADINE CAPS?20,25OCT,5,8,12NOV2012:1800MG
     Dates: start: 20120925, end: 20121113
  3. CALCIPARINE [Suspect]
     Dosage: THERAPY DATES:20,25OCT,5,8,12,15,19,23NOV,4,7DEC2012
     Dates: start: 20121020, end: 20121207

REACTIONS (2)
  - International normalised ratio decreased [Recovered/Resolved]
  - Enzyme activity increased [Recovered/Resolved]
